FAERS Safety Report 5389568-9 (Version None)
Quarter: 2007Q3

REPORT INFORMATION
  Report Type: 
  Country: None (occurrence: None)
  Receive Date: 20070717
  Receipt Date: 20070702
  Transmission Date: 20080115
  Serious: Yes (Death, Other)
  Sender: FDA-Public Use
  Company Number: US-PFIZER INC-2007055267

PATIENT
  Sex: Female

DRUGS (11)
  1. CELEBREX [Suspect]
     Indication: PAIN MANAGEMENT
     Dates: start: 20010101, end: 20020201
  2. BEXTRA [Suspect]
     Indication: PAIN
     Dates: start: 20020401, end: 20020424
  3. VIOXX [Suspect]
     Indication: PAIN
     Dates: start: 20010101, end: 20020425
  4. LASIX [Concomitant]
  5. ISOSORBIDE DINITRATE [Concomitant]
  6. ROXICET [Concomitant]
  7. BACLOFEN [Concomitant]
  8. METHADONE HCL [Concomitant]
  9. EFFEXOR [Concomitant]
  10. VALIUM [Concomitant]
  11. XANAX [Concomitant]

REACTIONS (3)
  - ANXIETY [None]
  - DEATH [None]
  - DEPRESSION [None]
